FAERS Safety Report 4931201-1 (Version None)
Quarter: 2006Q1

REPORT INFORMATION
  Report Type: 
  Country: None (occurrence: None)
  Receive Date: 20060302
  Receipt Date: 20050520
  Transmission Date: 20060701
  Serious: Yes (Hospitalization)
  Sender: FDA-Public Use
  Company Number: US-MERCK-0505USA02532

PATIENT
  Age: 67 Year
  Sex: Male
  Weight: 126 kg

DRUGS (3)
  1. VIOXX [Suspect]
     Indication: ARTHRITIS
     Route: 048
     Dates: start: 20010516, end: 20010611
  2. VIOXX [Suspect]
     Indication: BURSITIS
     Route: 048
     Dates: start: 20010516, end: 20010611
  3. ATENOLOL [Concomitant]
     Route: 065

REACTIONS (3)
  - CARDIAC FAILURE CONGESTIVE [None]
  - CONGESTIVE CARDIOMYOPATHY [None]
  - WEIGHT INCREASED [None]
